FAERS Safety Report 8835140 (Version 1)
Quarter: 2012Q4

REPORT INFORMATION
  Report Type: 
  Country: CA (occurrence: CA)
  Receive Date: 20121011
  Receipt Date: 20121011
  Transmission Date: 20130627
  Serious: Yes (Hospitalization, Other)
  Sender: FDA-Public Use
  Company Number: CA-ASTRAZENECA-2012SE76311

PATIENT
  Age: 83 Year
  Sex: Male

DRUGS (3)
  1. CRESTOR [Suspect]
     Route: 048
  2. NUMEROUS MEDICATIONS [Concomitant]
  3. VITAMIN D [Concomitant]

REACTIONS (5)
  - Malaise [Recovered/Resolved]
  - Loss of consciousness [Unknown]
  - Depressed level of consciousness [Unknown]
  - Viral infection [Unknown]
  - Fatigue [Recovered/Resolved]
